FAERS Safety Report 10006840 (Version 1)
Quarter: 2014Q1

REPORT INFORMATION
  Report Type: Spontaneous
  Country: US (occurrence: US)
  Receive Date: 20140313
  Receipt Date: 20140313
  Transmission Date: 20141002
  Serious: No
  Sender: FDA-Public Use
  Company Number: US-SHIRE-US201400165

PATIENT
  Sex: 0

DRUGS (5)
  1. VYVANSE [Suspect]
     Indication: ATTENTION DEFICIT/HYPERACTIVITY DISORDER
     Dosage: 70 MG, UNKNOWN (MORE THAN ONCE DAILY)
     Route: 048
     Dates: start: 2013
  2. VYVANSE [Suspect]
     Dosage: 70 MG, 1X/DAY:QD
     Route: 048
     Dates: start: 201303
  3. TRAZODONE [Concomitant]
     Indication: INSOMNIA
     Dosage: UNK, 1X/DAY:QD (AS NEEDED)
     Route: 048
     Dates: start: 201303
  4. WELLBUTRIN [Concomitant]
     Indication: PRODUCT USED FOR UNKNOWN INDICATION
     Dosage: UNK, 1X/DAY:QD
     Route: 048
     Dates: start: 201303
  5. KLONOPIN [Concomitant]
     Indication: PRODUCT USED FOR UNKNOWN INDICATION
     Dosage: UNK, 1X/DAY:QD
     Route: 048
     Dates: start: 201303, end: 201401

REACTIONS (3)
  - Inappropriate schedule of drug administration [Not Recovered/Not Resolved]
  - Overdose [Not Recovered/Not Resolved]
  - No adverse event [Not Recovered/Not Resolved]
